FAERS Safety Report 7117561-4 (Version None)
Quarter: 2010Q4

REPORT INFORMATION
  Report Type: 
  Country: None (occurrence: None)
  Receive Date: 20101122
  Receipt Date: 20101117
  Transmission Date: 20110411
  Serious: Yes (Other)
  Sender: FDA-Public Use
  Company Number: IE-AMGEN-IRLSP2010005066

PATIENT

DRUGS (2)
  1. PROLIA [Suspect]
     Indication: OSTEOPOROSIS POSTMENOPAUSAL
     Dosage: 60 MG, Q6MO
     Route: 058
     Dates: start: 20101108
  2. OXYCODONE HCL [Concomitant]
     Indication: NECK PAIN
     Dosage: UNK
     Route: 065
     Dates: end: 20101114

REACTIONS (4)
  - ABDOMINAL PAIN [None]
  - DEFAECATION URGENCY [None]
  - DRUG WITHDRAWAL SYNDROME [None]
  - PARAESTHESIA [None]
